FAERS Safety Report 19930387 (Version 1)
Quarter: 2021Q4

REPORT INFORMATION
  Report Type: Spontaneous
  Country: JP (occurrence: JP)
  Receive Date: 20211007
  Receipt Date: 20211007
  Transmission Date: 20220304
  Serious: Yes (Hospitalization)
  Sender: FDA-Public Use
  Company Number: JP-ASTRAZENECA-202175313_070810_P_1

PATIENT

DRUGS (6)
  1. SYNAGIS [Suspect]
     Active Substance: PALIVIZUMAB
     Indication: Product used for unknown indication
     Dosage: PALIVIZUMAB(GENETICAL RECOMBINATION):100MG?PALIVIZUMAB: 100.0MG
     Route: 030
     Dates: start: 20210709
  2. CARBOCYSTEINE [Concomitant]
     Active Substance: CARBOCYSTEINE
  3. PRANLUKAST [Concomitant]
     Active Substance: PRANLUKAST
  4. MUCOSAL [Concomitant]
  5. PROCATEROL HYDROCHLORIDE [Concomitant]
     Active Substance: PROCATEROL HYDROCHLORIDE
  6. ASVERIN [Concomitant]

REACTIONS (1)
  - Respiratory syncytial virus infection [Recovering/Resolving]

NARRATIVE: CASE EVENT DATE: 20210906
